FAERS Safety Report 5341587-4 (Version None)
Quarter: 2007Q2

REPORT INFORMATION
  Report Type: 
  Country: None (occurrence: None)
  Receive Date: 20070529
  Receipt Date: 20070529
  Transmission Date: 20071010
  Serious: No
  Sender: FDA-Public Use
  Company Number: None

PATIENT
  Age: 42 Year
  Sex: Male

DRUGS (1)
  1. SYNERCID [Suspect]

REACTIONS (2)
  - ADVERSE DRUG REACTION [None]
  - MYALGIA [None]
